FAERS Safety Report 19953053 (Version 1)
Quarter: 2021Q4

REPORT INFORMATION
  Report Type: Spontaneous
  Country: GB (occurrence: GB)
  Receive Date: 20211013
  Receipt Date: 20211013
  Transmission Date: 20220303
  Serious: Yes (Other)
  Sender: FDA-Public Use
  Company Number: GB-SA-SAC20211012000813

PATIENT
  Sex: Female

DRUGS (2)
  1. LEMTRADA [Suspect]
     Active Substance: ALEMTUZUMAB
     Dosage: UNK
  2. MORPHINE [Concomitant]
     Active Substance: MORPHINE
     Dosage: INCREASE THE DOSE FROM 25MG TO 30MG

REACTIONS (4)
  - Condition aggravated [Unknown]
  - Urinary incontinence [Unknown]
  - Pain [Unknown]
  - Memory impairment [Unknown]
